FAERS Safety Report 7607746-2 (Version None)
Quarter: 2011Q3

REPORT INFORMATION
  Report Type: 
  Country: None (occurrence: None)
  Receive Date: 20110713
  Receipt Date: 20110531
  Transmission Date: 20111222
  Serious: Yes (Other)
  Sender: FDA-Public Use
  Company Number: PHHY2011BR48045

PATIENT
  Sex: Female

DRUGS (3)
  1. DIOVAN [Suspect]
     Dosage: 320 MG, UNK
     Route: 048
  2. LOTAR [Concomitant]
  3. CORTISONE ACETATE [Concomitant]

REACTIONS (4)
  - BRONCHITIS [None]
  - ASTHMA [None]
  - HYPERTENSION [None]
  - DRUG INEFFECTIVE [None]
